FAERS Safety Report 4948718-6 (Version None)
Quarter: 2006Q1

REPORT INFORMATION
  Report Type: 
  Country: None (occurrence: None)
  Receive Date: 20060314
  Receipt Date: 20060220
  Transmission Date: 20060701
  Serious: Yes (Hospitalization)
  Sender: FDA-Public Use
  Company Number: 6020723

PATIENT
  Age: 28 Year
  Sex: Female

DRUGS (11)
  1. BISOPROLOL FUMARATE [Suspect]
     Dosage: 1,25  MG ORAL
     Route: 048
     Dates: end: 20060123
  2. COVERSYL (PERINDOPRIL) [Suspect]
     Dosage: ORAL
     Route: 048
     Dates: end: 20060123
  3. DIGOXIN [Suspect]
     Indication: ATRIAL FIBRILLATION
     Dosage: 0,5 DOSAGE FORMS (0,5 DOSAGE FORMS) ORAL
     Route: 048
     Dates: start: 20060112, end: 20060123
  4. DIGOXIN [Suspect]
     Indication: ATRIAL FLUTTER
     Dosage: 0,5 DOSAGE FORMS (0,5 DOSAGE FORMS) ORAL
     Route: 048
     Dates: start: 20060112, end: 20060123
  5. CORDARONE [Suspect]
     Indication: ATRIAL FIBRILLATION
     Dosage: 200,0000 MG (200 MG, 1 IN 1 D) ORAL
     Route: 048
  6. CORDARONE [Suspect]
     Indication: ATRIAL FLUTTER
     Dosage: 200,0000 MG (200 MG, 1 IN 1 D) ORAL
     Route: 048
  7. WARFARIN SODIUM [Suspect]
     Dates: end: 20060123
  8. WARFARIN SODIUM [Suspect]
     Dates: start: 20060101
  9. SURBRONC (AMBROXOL HYDROCHLORIDE) [Concomitant]
  10. MOVICOL (SODIUM BICARBONATE, POTASSIUM CHLORIDE, SODIUM CHLORIDE, MACR [Concomitant]
  11. IMOVANE (ZOPICLONE) [Concomitant]

REACTIONS (5)
  - BRADYCARDIA [None]
  - DRUG INTERACTION [None]
  - HYPOTENSION [None]
  - NAUSEA [None]
  - OVERDOSE [None]
